FAERS Safety Report 9313447 (Version 1)
Quarter: 2013Q2

REPORT INFORMATION
  Report Type: Spontaneous
  Country: US (occurrence: US)
  Receive Date: 20130528
  Receipt Date: 20130528
  Transmission Date: 20140414
  Serious: No
  Sender: FDA-Public Use
  Company Number: US-ABBOTT-13P-163-1050789-00

PATIENT
  Sex: Male

DRUGS (1)
  1. ANDROGEL 1.62% [Suspect]
     Indication: BLOOD TESTOSTERONE DECREASED
     Dosage: 2 PUMPS DAILY, ONE UNDER EACH ARM

REACTIONS (2)
  - Urine alcohol test positive [Unknown]
  - Drug administered at inappropriate site [Unknown]
